FAERS Safety Report 8345478-6 (Version None)
Quarter: 2012Q2

REPORT INFORMATION
  Report Type: 
  Country: None (occurrence: None)
  Receive Date: 20120508
  Receipt Date: 20120501
  Transmission Date: 20120825
  Serious: Yes (Other)
  Sender: FDA-Public Use
  Company Number: US-ROXANE LABORATORIES, INC.-2012-RO-01164RO

PATIENT
  Age: 12 Year
  Sex: Female
  Weight: 40 kg

DRUGS (4)
  1. PREDNISONE TAB [Suspect]
     Indication: ASTHMA
     Dosage: 10 MG
  2. PREDNISONE TAB [Suspect]
  3. RADIO IODINE [Suspect]
     Indication: BASEDOW'S DISEASE
  4. ATENOLOL [Suspect]
     Indication: HYPERTHYROIDISM
     Dosage: 25 MG

REACTIONS (5)
  - HYPOCALCAEMIA [None]
  - HYPOPARATHYROIDISM [None]
  - HYPERPHOSPHATAEMIA [None]
  - VITAMIN D DEFICIENCY [None]
  - CONDITION AGGRAVATED [None]
